FAERS Safety Report 4840329-6 (Version None)
Quarter: 2005Q4

REPORT INFORMATION
  Report Type: 
  Country: None (occurrence: None)
  Receive Date: 20051031
  Receipt Date: 20050708
  Transmission Date: 20060501
  Serious: No
  Sender: FDA-Public Use
  Company Number: 200515844US

PATIENT
  Sex: Female

DRUGS (4)
  1. KETEK [Suspect]
     Indication: MIDDLE EAR EFFUSION
     Dosage: 400 MG BID PO
     Route: 048
     Dates: start: 20050707
  2. KETEK [Suspect]
     Indication: SINUSITIS
     Dosage: 400 MG BID PO
     Route: 048
     Dates: start: 20050707
  3. ZYRTEC [Concomitant]
  4. MONTELUKAST SODIUM [Concomitant]

REACTIONS (1)
  - SOMNOLENCE [None]
